FAERS Safety Report 10067963 (Version 1)
Quarter: 2014Q2

REPORT INFORMATION
  Report Type: Spontaneous
  Country: US (occurrence: ES)
  Receive Date: 20140409
  Receipt Date: 20140409
  Transmission Date: 20141212
  Serious: Yes (Hospitalization)
  Sender: FDA-Public Use
  Company Number: 2014SP001915

PATIENT
  Age: 67 Year
  Sex: Male

DRUGS (7)
  1. GEMCITABINE HYDROCHLORIDE [Suspect]
     Indication: BLADDER CANCER
     Route: 042
     Dates: start: 20130314, end: 20130705
  2. CISPLATIN [Suspect]
     Indication: BLADDER CANCER
     Route: 042
     Dates: start: 20130314, end: 20130628
  3. CISPLATIN [Suspect]
     Indication: BLADDER CANCER
     Dates: end: 20130701
  4. ERIBULIN MESILATE [Suspect]
     Indication: BLADDER CANCER
     Route: 042
     Dates: start: 20130314, end: 20131205
  5. OMEPRAZOLE [Concomitant]
  6. MIRTAZAPINE [Concomitant]
  7. ESCITALOPRAM [Concomitant]

REACTIONS (2)
  - Presyncope [Recovered/Resolved]
  - Headache [Recovered/Resolved]
